FAERS Safety Report 22055061 (Version 1)
Quarter: 2023Q1

REPORT INFORMATION
  Report Type: Spontaneous
  Country: CN (occurrence: CN)
  Receive Date: 20230302
  Receipt Date: 20230302
  Transmission Date: 20230417
  Serious: Yes (Hospitalization, Other)
  Sender: FDA-Public Use
  Company Number: CN-PFIZER INC-PV202300037139

PATIENT
  Age: 23 Year
  Sex: Female
  Weight: 66 kg

DRUGS (1)
  1. METHOTREXATE SODIUM [Suspect]
     Active Substance: METHOTREXATE SODIUM
     Indication: Abortion induced
     Dosage: 50 MG, 1X/DAY
     Route: 030
     Dates: start: 20230210, end: 20230210

REACTIONS (9)
  - Myelosuppression [Recovering/Resolving]
  - Rash [Recovering/Resolving]
  - Oral pain [Recovering/Resolving]
  - Drug eruption [Recovering/Resolving]
  - Gingival pain [Recovering/Resolving]
  - Toothache [Not Recovered/Not Resolved]
  - Burning mouth syndrome [Unknown]
  - Oral discomfort [Unknown]
  - Off label use [Unknown]

NARRATIVE: CASE EVENT DATE: 20230210
